FAERS Safety Report 18866053 (Version 1)
Quarter: 2021Q1

REPORT INFORMATION
  Report Type: Spontaneous
  Country: US (occurrence: US)
  Receive Date: 20210205
  Receipt Date: 20210205
  Transmission Date: 20210420
  Serious: Yes (Death, Life-Threatening, Hospitalization, Disabling, Congenital Anomaly, Other)
  Sender: FDA-Public Use
  Company Number: None

PATIENT
  Age: 70 Year
  Weight: 58.5 kg

DRUGS (3)
  1. ALBUTEROL. [Concomitant]
     Active Substance: ALBUTEROL
  2. FLOVENT [Concomitant]
     Active Substance: FLUTICASONE PROPIONATE
  3. EPINEPHRINE INJECTION, USP AUTO?INJECTORS 0.15 MG [Suspect]
     Active Substance: EPINEPHRINE
     Indication: ANAPHYLACTIC REACTION
     Dosage: ?          QUANTITY:2 INJECTION(S);OTHER FREQUENCY:READ INSTRUCTIONS;?
     Route: 030
     Dates: start: 20201124, end: 20210205

REACTIONS (6)
  - Wrong dose [None]
  - Product use complaint [None]
  - Product packaging confusion [None]
  - Circumstance or information capable of leading to device use error [None]
  - Product administered to patient of inappropriate age [None]
  - Product complaint [None]

NARRATIVE: CASE EVENT DATE: 20210205
